FAERS Safety Report 21283300 (Version 2)
Quarter: 2022Q3

REPORT INFORMATION
  Report Type: Spontaneous
  Country: US (occurrence: None)
  Receive Date: 20220901
  Receipt Date: 20220902
  Transmission Date: 20221027
  Serious: Yes (Hospitalization, Other)
  Sender: FDA-Public Use
  Company Number: 2022A299666

PATIENT
  Age: 65 Year
  Sex: Female
  Weight: 64.4 kg

DRUGS (11)
  1. FASLODEX [Suspect]
     Active Substance: FULVESTRANT
     Indication: Neoplasm malignant
     Dosage: DAY 1
     Route: 030
     Dates: start: 20220121, end: 20220704
  2. METOPROLOL [Suspect]
     Active Substance: METOPROLOL
     Route: 048
  3. GLUCOPHAGE XR [Concomitant]
     Active Substance: METFORMIN HYDROCHLORIDE
  4. MORPHINE SULFATE [Concomitant]
     Active Substance: MORPHINE SULFATE
  5. COMPAZINE [Concomitant]
     Active Substance: PROCHLORPERAZINE MALEATE
  6. ZOLOFT [Concomitant]
     Active Substance: SERTRALINE HYDROCHLORIDE
  7. CAPECITABINE [Concomitant]
     Active Substance: CAPECITABINE
  8. DEXAMETHASONE [Concomitant]
     Active Substance: DEXAMETHASONE
  9. PROCHLORPERAZINE MALEATE [Concomitant]
     Active Substance: PROCHLORPERAZINE MALEATE
  10. NORVASC [Concomitant]
     Active Substance: AMLODIPINE BESYLATE
  11. RIVAROXABAN [Concomitant]
     Active Substance: RIVAROXABAN

REACTIONS (8)
  - Acute respiratory failure [Unknown]
  - Mediastinal mass [Unknown]
  - Malignant pleural effusion [Unknown]
  - Pericardial effusion [Unknown]
  - Malignant neoplasm progression [Unknown]
  - Peripheral swelling [Unknown]
  - Dizziness [Unknown]
  - Blood pressure increased [Unknown]
